FAERS Safety Report 8165658-2 (Version None)
Quarter: 2012Q1

REPORT INFORMATION
  Report Type: 
  Country: None (occurrence: None)
  Receive Date: 20120227
  Receipt Date: 20120215
  Transmission Date: 20120608
  Serious: Yes (Other)
  Sender: FDA-Public Use
  Company Number: US-BRISTOL-MYERS SQUIBB COMPANY-16416752

PATIENT
  Age: 33 Year
  Sex: Female

DRUGS (1)
  1. ORENCIA [Suspect]
     Dosage: 1 DF = 3 VIALS BY INFUSION

REACTIONS (3)
  - PREMATURE SEPARATION OF PLACENTA [None]
  - PREGNANCY [None]
  - BLOOD PRESSURE DECREASED [None]
